FAERS Safety Report 7551103-4 (Version None)
Quarter: 2011Q2

REPORT INFORMATION
  Report Type: 
  Country: None (occurrence: None)
  Receive Date: 20110616
  Receipt Date: 20110613
  Transmission Date: 20111010
  Serious: Yes (Death, Hospitalization)
  Sender: FDA-Public Use
  Company Number: AR-BRISTOL-MYERS SQUIBB COMPANY-15556244

PATIENT
  Age: 68 Year
  Sex: Male

DRUGS (6)
  1. PLACEBO [Suspect]
     Indication: THROMBOSIS PROPHYLAXIS
     Dosage: API/PLA:09OCT08-08FEB11 WAR/PLA:09OCT08-07FEB11
     Route: 048
     Dates: start: 20081009, end: 20110207
  2. ENALAPRIL MALEATE [Concomitant]
     Dates: start: 20080910, end: 20110212
  3. ATENOLOL [Concomitant]
     Dates: start: 20080910, end: 20110212
  4. FUROSEMIDE [Concomitant]
     Dates: start: 20080913, end: 20110212
  5. SPIRONOLACTONE [Concomitant]
     Dates: start: 20080913, end: 20110212
  6. WARFARIN SODIUM [Suspect]
     Indication: THROMBOSIS PROPHYLAXIS
     Route: 048
     Dates: start: 20081009, end: 20110207

REACTIONS (3)
  - SEPTIC SHOCK [None]
  - HYPOVOLAEMIC SHOCK [None]
  - OSTEOMYELITIS CHRONIC [None]
